FAERS Safety Report 7776852-4 (Version None)
Quarter: 2011Q3

REPORT INFORMATION
  Report Type: 
  Country: None (occurrence: None)
  Receive Date: 20110926
  Receipt Date: 20110913
  Transmission Date: 20111222
  Serious: Yes (Hospitalization)
  Sender: FDA-Public Use
  Company Number: DE-ELI_LILLY_AND_COMPANY-DE201106004044

PATIENT
  Sex: Female

DRUGS (7)
  1. FORTEO [Suspect]
     Indication: OSTEOPOROSIS
     Dosage: UNK, QD
     Route: 058
     Dates: start: 20100617
  2. FOLIC ACID [Concomitant]
     Dosage: 5 MG, WEEKLY (1/W)
     Dates: end: 20100101
  3. CALCIUM CARBONATE [Concomitant]
     Dosage: UNK
     Dates: end: 20110101
  4. METHOTREXATE [Concomitant]
     Dosage: 10 MG, UNK
     Dates: end: 20100101
  5. LEVOTHYROXINE SODIUM [Concomitant]
     Dosage: 1.5 DF, UNK
     Dates: start: 20110101
  6. CALCIVIT D [Concomitant]
     Dosage: 600 MG, UNK
     Dates: start: 20110101
  7. LEVOTHYROXINE SODIUM [Concomitant]
     Dosage: 1 DF, UNK
     Dates: end: 20110101

REACTIONS (3)
  - SYNOVIORTHESIS [None]
  - ACNE [None]
  - MICTURITION URGENCY [None]
